FAERS Safety Report 26149731 (Version 1)
Quarter: 2025Q4

REPORT INFORMATION
  Report Type: Spontaneous
  Country: AU (occurrence: AU)
  Receive Date: 20251212
  Receipt Date: 20251212
  Transmission Date: 20260118
  Serious: Yes (Other)
  Sender: NOVARTIS
  Company Number: AU-002147023-NVSC2025AU189500

PATIENT
  Age: 81 Year
  Sex: Female

DRUGS (5)
  1. MYCOPHENOLIC ACID [Suspect]
     Active Substance: MYCOPHENOLIC ACID
     Indication: Neurodermatitis
     Dosage: UNK
     Route: 065
  2. METHOTREXATE [Suspect]
     Active Substance: METHOTREXATE
     Indication: Neurodermatitis
     Dosage: UNK
     Route: 065
  3. GABAPENTIN [Suspect]
     Active Substance: GABAPENTIN
     Indication: Neurodermatitis
     Dosage: UNK
     Route: 065
  4. UPADACITINIB [Suspect]
     Active Substance: UPADACITINIB
     Indication: Neurodermatitis
     Dosage: UNK
     Route: 065
  5. DUPILUMAB [Suspect]
     Active Substance: DUPILUMAB
     Indication: Neurodermatitis
     Dosage: UNK
     Route: 065

REACTIONS (6)
  - Thrombocytopenia [Unknown]
  - Renal impairment [Unknown]
  - Condition aggravated [Unknown]
  - Somnolence [Unknown]
  - Off label use [Unknown]
  - Quality of life decreased [Unknown]
